FAERS Safety Report 5804019-5 (Version None)
Quarter: 2008Q3

REPORT INFORMATION
  Report Type: 
  Country: None (occurrence: None)
  Receive Date: 20080703
  Receipt Date: 20080623
  Transmission Date: 20090109
  Serious: Yes (Hospitalization)
  Sender: FDA-Public Use
  Company Number: 234541K07USA

PATIENT
  Age: 44 Year
  Sex: Female

DRUGS (5)
  1. REBIF [Suspect]
     Indication: MULTIPLE SCLEROSIS
     Dosage: 22 MCG, 3 IN 1 WEEKS, SUBCUTANEOUS;  44 MCG, 3 IN 1 WEEKS, SUBCUTANEOUS
     Route: 058
     Dates: start: 20070509, end: 20070601
  2. REBIF [Suspect]
     Indication: MULTIPLE SCLEROSIS
     Dosage: 22 MCG, 3 IN 1 WEEKS, SUBCUTANEOUS;  44 MCG, 3 IN 1 WEEKS, SUBCUTANEOUS
     Route: 058
     Dates: start: 20070601, end: 20070627
  3. CYMBALTA [Concomitant]
  4. LORTAB [Concomitant]
  5. PROVIGIL [Concomitant]

REACTIONS (5)
  - ARTHRALGIA [None]
  - FATIGUE [None]
  - INJECTION SITE ERYTHEMA [None]
  - MIGRAINE [None]
  - MYALGIA [None]
